FAERS Safety Report 4952578-7 (Version None)
Quarter: 2006Q1

REPORT INFORMATION
  Report Type: 
  Country: None (occurrence: None)
  Receive Date: 20060317
  Receipt Date: 20060309
  Transmission Date: 20060701
  Serious: Yes (Hospitalization)
  Sender: FDA-Public Use
  Company Number: ZONI002277

PATIENT
  Age: 81 Year
  Sex: Female

DRUGS (4)
  1. ZONISAMIDE [Suspect]
     Indication: CONVULSION
     Dosage: 400 MG, 1 IN 1 D, ORAL
     Route: 048
     Dates: start: 20060120, end: 20060220
  2. CARVEDILOL [Concomitant]
  3. CONIEL (BENIDIPINE HYDROCHLORIDE) [Concomitant]
  4. MAGMITT (MAGNESIUM OXIDE) [Concomitant]

REACTIONS (1)
  - STEVENS-JOHNSON SYNDROME [None]
